FAERS Safety Report 21035104 (Version 1)
Quarter: 2022Q3

REPORT INFORMATION
  Report Type: Spontaneous
  Country: US (occurrence: None)
  Receive Date: 20220701
  Receipt Date: 20220701
  Transmission Date: 20221027
  Serious: No
  Sender: FDA-Public Use
  Company Number: None

PATIENT
  Age: 42 Year
  Sex: Female
  Weight: 113.85 kg

DRUGS (11)
  1. METRONIDAZOLE [Suspect]
     Active Substance: METRONIDAZOLE
     Indication: Gastrointestinal infection
     Dosage: FREQUENCY : 3 TIMES A DAY;?
     Route: 048
  2. LISINOPRIL [Concomitant]
     Active Substance: LISINOPRIL
  3. SYNTHROID [Concomitant]
     Active Substance: LEVOTHYROXINE SODIUM
  4. fluoxotine [Concomitant]
  5. XANAX [Concomitant]
     Active Substance: ALPRAZOLAM
  6. lomodil [Concomitant]
  7. ALBUTEROL [Concomitant]
     Active Substance: ALBUTEROL
  8. PROBIOTICS NOS [Concomitant]
     Active Substance: PROBIOTICS NOS
  9. VITAMIN B12 [Concomitant]
     Active Substance: CYANOCOBALAMIN
  10. allergy meds [Concomitant]
  11. UNSPECIFIED INGREDIENT [Concomitant]
     Active Substance: UNSPECIFIED INGREDIENT

REACTIONS (1)
  - Chromaturia [None]

NARRATIVE: CASE EVENT DATE: 20220701
